FAERS Safety Report 8769522 (Version 1)
Quarter: 2012Q4

REPORT INFORMATION
  Report Type: 
  Country: JP (occurrence: JP)
  Receive Date: 20120905
  Receipt Date: 20120905
  Transmission Date: 20130627
  Serious: Yes (Life-Threatening, Other)
  Sender: FDA-Public Use
  Company Number: JP-ROXANE LABORATORIES, INC.-2012-RO-01770RO

PATIENT
  Age: 63 Year
  Sex: Male
  Weight: 69 kg

DRUGS (6)
  1. DIAZEPAM [Suspect]
     Indication: ANAESTHETIC PREMEDICATION
     Dosage: 7 mg
     Route: 048
  2. LIDOCAINE W/ ADRENALINE [Suspect]
     Indication: EPIDURAL ANAESTHESIA
     Route: 008
  3. FENTANYL [Suspect]
     Indication: INDUCTION OF ANAESTHESIA
     Route: 008
  4. PROPOFOL [Suspect]
     Indication: INDUCTION AND MAINTENANCE OF ANAESTHESIA
  5. VECURONIUM [Suspect]
     Indication: MUSCLE RELAXANT THERAPY
  6. ROPIVACAINE [Suspect]
     Indication: NERVE BLOCK

REACTIONS (4)
  - Arteriospasm coronary [Recovered/Resolved]
  - Ventricular fibrillation [Recovered/Resolved]
  - Bundle branch block [Unknown]
  - Blood magnesium decreased [Unknown]
